FAERS Safety Report 25650074 (Version 1)
Quarter: 2025Q3

REPORT INFORMATION
  Report Type: Spontaneous
  Country: US (occurrence: None)
  Receive Date: 20250805
  Receipt Date: 20250805
  Transmission Date: 20251020
  Serious: Yes (Disabling, Other)
  Sender: FDA-CTU
  Company Number: None

PATIENT
  Age: 28 Year
  Sex: Male
  Weight: 80 kg

DRUGS (2)
  1. OLANZAPINE [Suspect]
     Active Substance: OLANZAPINE
     Indication: Bipolar disorder
     Dosage: 1 TABLET (S) DAILY ORAL
     Route: 048
  2. ARIPIPRAZOLE [Suspect]
     Active Substance: ARIPIPRAZOLE
     Indication: Bipolar disorder
     Dosage: 1 TABLET DAILY ORAL ?
     Route: 048

REACTIONS (7)
  - Sedation [None]
  - Metabolic disorder [None]
  - Sexual dysfunction [None]
  - Asthenia [None]
  - Tardive dyskinesia [None]
  - Akathisia [None]
  - Product complaint [None]
